FAERS Safety Report 10612944 (Version 1)
Quarter: 2014Q4

REPORT INFORMATION
  Report Type: Spontaneous
  Country: PL (occurrence: PL)
  Receive Date: 20141127
  Receipt Date: 20141127
  Transmission Date: 20150529
  Serious: Yes (Other)
  Sender: FDA-Public Use
  Company Number: PL-SYMPLMED PHARMACEUTICALS-2014SYM00182

PATIENT
  Age: 72 Year
  Sex: Female

DRUGS (6)
  1. GINKOFAR [Concomitant]
     Indication: MENIERE^S DISEASE
     Dosage: 2 TABLETS, DAILY
  2. ACEON [Suspect]
     Active Substance: PERINDOPRIL ERBUMINE
     Indication: HYPERTENSION
     Dosage: 5 MG, QD
     Route: 048
     Dates: start: 20141107, end: 20141108
  3. CO-PRESTARIUM [Suspect]
     Active Substance: AMLODIPINE\PERINDOPRIL
     Dosage: UNK
     Route: 048
     Dates: start: 20141027, end: 20141027
  4. CO-PRESTARIUM [Suspect]
     Active Substance: AMLODIPINE\PERINDOPRIL
     Indication: HYPERTENSION
     Dosage: UNK
     Route: 048
     Dates: start: 201409, end: 20141023
  5. GINGER. [Concomitant]
     Active Substance: GINGER
     Indication: MENIERE^S DISEASE
     Dosage: UNK
  6. CO-PRESTARIUM [Suspect]
     Active Substance: AMLODIPINE\PERINDOPRIL
     Dosage: UNK
     Route: 048
     Dates: start: 20141030, end: 20141106

REACTIONS (12)
  - Oedema peripheral [Recovered/Resolved]
  - Pain [Recovered/Resolved]
  - Oral herpes [Recovered/Resolved]
  - Pharyngeal oedema [Recovered/Resolved]
  - Hypopnoea [Recovered/Resolved]
  - Muscular weakness [Recovered/Resolved]
  - Pollakiuria [Recovered/Resolved]
  - Hypoaesthesia [Recovered/Resolved]
  - Face oedema [Recovered/Resolved]
  - Tongue oedema [Recovered/Resolved]
  - Gait disturbance [Recovered/Resolved]
  - Drug ineffective [Not Recovered/Not Resolved]

NARRATIVE: CASE EVENT DATE: 2014
